FAERS Safety Report 7611101-9 (Version None)
Quarter: 2011Q3

REPORT INFORMATION
  Report Type: 
  Country: None (occurrence: None)
  Receive Date: 20110715
  Receipt Date: 20110713
  Transmission Date: 20111222
  Serious: Yes (Hospitalization, Other)
  Sender: FDA-Public Use
  Company Number: US-PFIZER INC-2010138759

PATIENT
  Sex: Female

DRUGS (8)
  1. VALIUM [Concomitant]
     Indication: ANXIETY
     Dosage: UNK
     Dates: start: 20050101
  2. ALBUTEROL SULFATE AUTOHALER [Concomitant]
     Indication: ASTHMA
     Dosage: UNK
     Dates: start: 19870101
  3. SOMA [Concomitant]
     Indication: BACK PAIN
  4. SOMA [Concomitant]
     Indication: NECK PAIN
     Dosage: UNK
     Dates: start: 20000101
  5. ROXICET [Concomitant]
     Indication: BACK PAIN
  6. CHANTIX [Suspect]
     Indication: SMOKING CESSATION THERAPY
     Dosage: 0.5 MG/ 1.0 MG
     Dates: start: 20070517, end: 20071102
  7. ADVAIR DISKUS 100/50 [Concomitant]
     Indication: ASTHMA
     Dosage: UNK
     Dates: start: 20050101
  8. ROXICET [Concomitant]
     Indication: NECK PAIN
     Dosage: UNK
     Dates: start: 20000101, end: 20080101

REACTIONS (9)
  - AFFECT LABILITY [None]
  - ANXIETY [None]
  - DEPRESSION [None]
  - MENTAL DISORDER [None]
  - AGGRESSION [None]
  - SUICIDE ATTEMPT [None]
  - INTENTIONAL OVERDOSE [None]
  - EMOTIONAL DISTRESS [None]
  - ABNORMAL BEHAVIOUR [None]
